FAERS Safety Report 7502849-5 (Version None)
Quarter: 2011Q2

REPORT INFORMATION
  Report Type: 
  Country: None (occurrence: None)
  Receive Date: 20110525
  Receipt Date: 20100826
  Transmission Date: 20111010
  Serious: No
  Sender: FDA-Public Use
  Company Number: US-NOVEN-ALL1-2010-04526

PATIENT
  Sex: Female
  Weight: 49.433 kg

DRUGS (2)
  1. DAYTRANA [Suspect]
     Dosage: 30 MG, WEEKDAYS
     Route: 062
     Dates: start: 20100825
  2. DAYTRANA [Suspect]
     Dosage: 10 MG, WEEKDAYS
     Route: 062
     Dates: start: 20090401, end: 20091201

REACTIONS (3)
  - APPLICATION SITE ERYTHEMA [None]
  - INSOMNIA [None]
  - DRUG EFFECT DECREASED [None]
